FAERS Safety Report 8039208-5 (Version None)
Quarter: 2012Q1

REPORT INFORMATION
  Report Type: 
  Country: None (occurrence: None)
  Receive Date: 20120111
  Receipt Date: 20111213
  Transmission Date: 20120608
  Serious: No
  Sender: FDA-Public Use
  Company Number: US-AMGEN-USASP2011066465

PATIENT
  Sex: Male

DRUGS (2)
  1. ENBREL [Suspect]
     Indication: PSORIASIS
     Dosage: 50 MG, QWK
     Dates: start: 20030328
  2. ENBREL [Suspect]
     Indication: PSORIATIC ARTHROPATHY

REACTIONS (6)
  - SKIN PLAQUE [None]
  - NASOPHARYNGITIS [None]
  - INJECTION SITE PAIN [None]
  - INJECTION SITE INDURATION [None]
  - ARTHRALGIA [None]
  - MUSCULOSKELETAL STIFFNESS [None]
